FAERS Safety Report 4268544-3 (Version None)
Quarter: 2004Q1

REPORT INFORMATION
  Report Type: 
  Country: None (occurrence: None)
  Receive Date: 20040108
  Receipt Date: 20031229
  Transmission Date: 20041129
  Serious: No
  Sender: FDA-Public Use
  Company Number: 01/06193-USE

PATIENT
  Age: 57 Year
  Sex: Female
  Weight: 56 kg

DRUGS (5)
  1. BETASERON [Suspect]
     Indication: MULTIPLE SCLEROSIS
     Dosage: 8 MIU, EVERY 2D, SUBCUTANEOUS
     Route: 058
     Dates: start: 19960111
  2. BACLOFEN [Concomitant]
  3. TAMOXIFEN CITRATE [Concomitant]
  4. PROZAC [Concomitant]
  5. TRAZODONE HCL [Concomitant]

REACTIONS (6)
  - DRY SKIN [None]
  - INJECTION SITE ATROPHY [None]
  - INJECTION SITE DESQUAMATION [None]
  - INJECTION SITE HAEMORRHAGE [None]
  - INJECTION SITE PAIN [None]
  - MULTIPLE SCLEROSIS [None]
